FAERS Safety Report 7003555-6 (Version None)
Quarter: 2010Q3

REPORT INFORMATION
  Report Type: 
  Country: None (occurrence: None)
  Receive Date: 20100920
  Receipt Date: 20100911
  Transmission Date: 20110219
  Serious: Yes (Other)
  Sender: FDA-Public Use
  Company Number: JP-AMGEN-KDC438901

PATIENT
  Age: 68 Year
  Sex: Female

DRUGS (1)
  1. VECTIBIX [Suspect]
     Indication: COLORECTAL CANCER
     Route: 041
     Dates: start: 20100817

REACTIONS (2)
  - BLOOD AMYLASE INCREASED [None]
  - DERMATITIS [None]
